FAERS Safety Report 5710032-9 (Version None)
Quarter: 2008Q2

REPORT INFORMATION
  Report Type: 
  Country: None (occurrence: None)
  Receive Date: 20080418
  Receipt Date: 20080407
  Transmission Date: 20081010
  Serious: Yes (Other)
  Sender: FDA-Public Use
  Company Number: PHEH2008US03508

PATIENT
  Sex: Female

DRUGS (1)
  1. GLEEVEC [Suspect]
     Indication: DERMATOFIBROSARCOMA
     Dosage: 400 MG, BID
     Route: 048

REACTIONS (1)
  - BREAST CANCER [None]
